FAERS Safety Report 16853467 (Version 1)
Quarter: 2019Q3

REPORT INFORMATION
  Report Type: Spontaneous
  Country: US (occurrence: US)
  Receive Date: 20190925
  Receipt Date: 20190925
  Transmission Date: 20191005
  Serious: No
  Sender: FDA-Public Use
  Company Number: US-SHIRE-US201930805

PATIENT
  Age: 39 Year
  Sex: Female
  Weight: 46.71 kg

DRUGS (1)
  1. VPRIV [Suspect]
     Active Substance: VELAGLUCERASE ALFA
     Indication: PRODUCT USED FOR UNKNOWN INDICATION
     Dosage: 3200 INTERNATIONAL UNIT, EVERY 10 DAYS
     Route: 042
     Dates: start: 20091101

REACTIONS (2)
  - Chest discomfort [Recovered/Resolved]
  - Exposure during pregnancy [Not Recovered/Not Resolved]

NARRATIVE: CASE EVENT DATE: 20190911
